FAERS Safety Report 19876771 (Version 1)
Quarter: 2021Q3

REPORT INFORMATION
  Report Type: Report from Study
  Country: CN (occurrence: CN)
  Receive Date: 20210924
  Receipt Date: 20210924
  Transmission Date: 20211014
  Serious: Yes (Hospitalization, Other)
  Sender: FDA-Public Use
  Company Number: CN-AMGEN-CHNSP2021141251

PATIENT
  Age: 60 Year
  Sex: Male

DRUGS (1)
  1. AMG 510 [Suspect]
     Active Substance: AMG-510
     Indication: COLORECTAL CANCER METASTATIC
     Dosage: 960 MILLIGRAM, QD
     Route: 065
     Dates: start: 20210729

REACTIONS (7)
  - Liver injury [Unknown]
  - Pleural effusion [Unknown]
  - Colorectal cancer metastatic [Not Recovered/Not Resolved]
  - Cerebral infarction [Not Recovered/Not Resolved]
  - Jaundice [Unknown]
  - Off label use [Unknown]
  - Ascites [Unknown]

NARRATIVE: CASE EVENT DATE: 2021
